FAERS Safety Report 8013698-6 (Version None)
Quarter: 2011Q4

REPORT INFORMATION
  Report Type: 
  Country: None (occurrence: None)
  Receive Date: 20111229
  Receipt Date: 20111216
  Transmission Date: 20120403
  Serious: Yes (Hospitalization)
  Sender: FDA-Public Use
  Company Number: US-ELI_LILLY_AND_COMPANY-US201112000894

PATIENT
  Sex: Female

DRUGS (3)
  1. FORTEO [Suspect]
     Dosage: UNK
     Dates: start: 20111119
  2. FORTEO [Suspect]
     Dosage: UNK
  3. FORTEO [Suspect]
     Dosage: UNK

REACTIONS (5)
  - GASTROINTESTINAL OBSTRUCTION [None]
  - POSTOPERATIVE ADHESION [None]
  - VOMITING [None]
  - NAUSEA [None]
  - SURGERY [None]
